FAERS Safety Report 7758214-9 (Version None)
Quarter: 2011Q3

REPORT INFORMATION
  Report Type: 
  Country: None (occurrence: None)
  Receive Date: 20110919
  Receipt Date: 20110913
  Transmission Date: 20111222
  Serious: Yes (Death, Hospitalization, Other)
  Sender: FDA-Public Use
  Company Number: JP-BAYER-2011-035280

PATIENT
  Age: 62 Year
  Sex: Female
  Weight: 74 kg

DRUGS (6)
  1. LEUCON [Concomitant]
     Dosage: DAILY DOSE 30 MG
     Route: 048
     Dates: start: 20101226, end: 20110516
  2. NEXAVAR [Suspect]
     Indication: HEPATIC NEOPLASM MALIGNANT
     Dosage: 200 MG, BID
     Route: 048
     Dates: start: 20110414, end: 20110420
  3. JUZENTAIHOTO [Concomitant]
     Dosage: DAILY DOSE 5 G
     Dates: start: 20101220, end: 20110516
  4. JUZENTAIHOTO [Concomitant]
     Dosage: DAILY DOSE 5 G
     Route: 048
     Dates: start: 20110420, end: 20110516
  5. SELBEX [Concomitant]
     Dosage: DAILY DOSE 50 MG
     Route: 048
     Dates: start: 20110422, end: 20110423
  6. NORVASC [Concomitant]
     Dosage: DAILY DOSE 2.5 MG
     Route: 048
     Dates: end: 20110516

REACTIONS (5)
  - PYREXIA [None]
  - HEPATIC FUNCTION ABNORMAL [None]
  - INSOMNIA [None]
  - ASCITES [None]
  - ENCEPHALOPATHY [None]
